FAERS Safety Report 9975017 (Version 1)
Quarter: 2014Q1

REPORT INFORMATION
  Report Type: Report from Study
  Country: US (occurrence: US)
  Receive Date: 20140306
  Receipt Date: 20140306
  Transmission Date: 20141002
  Serious: No
  Sender: FDA-Public Use
  Company Number: US-ABBVIE-13P-163-1160056-00

PATIENT
  Age: 50 Year
  Sex: Female

DRUGS (8)
  1. HUMIRA [Suspect]
     Indication: CROHN^S DISEASE
     Dosage: LOADING DOSE
     Dates: start: 20131021, end: 20131021
  2. PROZAC [Concomitant]
     Indication: DEPRESSION
  3. LEVOTHYROXINE [Concomitant]
     Indication: HYPOTHYROIDISM
  4. PREMARIN [Concomitant]
     Indication: HORMONE REPLACEMENT THERAPY
  5. CALCIUM [Concomitant]
     Indication: SUPPLEMENTATION THERAPY
  6. MULTIVITAMIN [Concomitant]
     Indication: SUPPLEMENTATION THERAPY
  7. B12 [Concomitant]
     Indication: SUPPLEMENTATION THERAPY
  8. WALMART BRAND 24 HOUR ALLERGY MEDICINE [Concomitant]
     Indication: SEASONAL ALLERGY

REACTIONS (4)
  - Injection site bruising [Not Recovered/Not Resolved]
  - Injection site pain [Not Recovered/Not Resolved]
  - Injection site haemorrhage [Recovered/Resolved]
  - Injection site pain [Not Recovered/Not Resolved]
